FAERS Safety Report 7380080-4 (Version None)
Quarter: 2011Q1

REPORT INFORMATION
  Report Type: 
  Country: None (occurrence: None)
  Receive Date: 20110318
  Receipt Date: 20110307
  Transmission Date: 20110831
  Serious: Yes (Other)
  Sender: FDA-Public Use
  Company Number: FK201100388

PATIENT
  Age: 25 Year
  Sex: Female

DRUGS (3)
  1. ASTRAMORPH PF [Suspect]
     Indication: PAIN MANAGEMENT
     Dosage: 150 MG, INTRATHECAL
     Route: 037
  2. SENSORCAINE (BUPIVACAINE HYDROCHLORIDE) (BUPIVACAINE HYDROCHLORIDE) [Concomitant]
  3. FENTANYL [Concomitant]

REACTIONS (1)
  - MENINGITIS HERPES [None]
